FAERS Safety Report 6598630-4 (Version None)
Quarter: 2010Q1

REPORT INFORMATION
  Report Type: 
  Country: None (occurrence: None)
  Receive Date: 20100219
  Receipt Date: 20100219
  Transmission Date: 20100710
  Serious: Yes (Life-Threatening, Other)
  Sender: FDA-Public Use
  Company Number: None

PATIENT
  Age: 34 Year
  Sex: Male
  Weight: 95.2554 kg

DRUGS (2)
  1. LAMICTAL [Suspect]
     Indication: FUNGAL INFECTION
     Dosage: 200 MG 1X DAILY PO
     Route: 048
     Dates: start: 20091224, end: 20100218
  2. LAMISIL [Suspect]
     Indication: FUNGAL INFECTION
     Dosage: 250 MG 1X DAILY PO
     Route: 048
     Dates: start: 20100218, end: 20100218

REACTIONS (5)
  - AGGRESSION [None]
  - INCORRECT DOSE ADMINISTERED [None]
  - IRRITABILITY [None]
  - MANIA [None]
  - MEDICATION ERROR [None]
